FAERS Safety Report 7638095-4 (Version None)
Quarter: 2011Q3

REPORT INFORMATION
  Report Type: 
  Country: None (occurrence: None)
  Receive Date: 20110727
  Receipt Date: 20110719
  Transmission Date: 20111222
  Serious: Yes (Other)
  Sender: FDA-Public Use
  Company Number: US-JNJFOC-20110708755

PATIENT
  Sex: Female

DRUGS (3)
  1. METOPROLOL TARTRATE [Concomitant]
     Route: 065
  2. LIPITOR [Concomitant]
     Route: 065
  3. LEVAQUIN [Suspect]
     Indication: URINARY TRACT INFECTION
     Route: 065

REACTIONS (3)
  - DIZZINESS [None]
  - FALL [None]
  - VISUAL IMPAIRMENT [None]
